FAERS Safety Report 4974848-9 (Version None)
Quarter: 2006Q1

REPORT INFORMATION
  Report Type: 
  Country: None (occurrence: None)
  Receive Date: 20060227
  Receipt Date: 20051114
  Transmission Date: 20060701
  Serious: Yes (Hospitalization, Other)
  Sender: FDA-Public Use
  Company Number: US_0411107609

PATIENT
  Age: 44 Year
  Sex: Male
  Weight: 100 kg

DRUGS (13)
  1. ZYPREXA [Suspect]
     Dosage: 15 MG, EACH EVENING
     Dates: start: 19980909, end: 20020101
  2. PROZAC [Suspect]
     Dosage: SEE  IMAGE
     Dates: start: 19990127, end: 20020530
  3. PROZAC [Suspect]
     Dosage: SEE  IMAGE
     Dates: start: 20040406
  4. HUMULIN 70/30 [Suspect]
     Indication: DIABETES MELLITUS
     Dates: start: 19980101, end: 20030101
  5. SYMBYAX [Suspect]
     Dates: start: 19990310, end: 20011226
  6. DEPAKOTE [Concomitant]
  7. MULTI-VITAMIN [Concomitant]
  8. ASPIRIN [Concomitant]
  9. CLONAZEPAM [Concomitant]
  10. BUPROPION HCL [Concomitant]
  11. POTASSIUM CHLORIDE [Concomitant]
  12. PHENERGAN (PROMETHAZINE HYDROCHLORIDE) [Concomitant]
  13. MYLANTA-II [Concomitant]

REACTIONS (13)
  - BLOOD PRESSURE INCREASED [None]
  - BUNDLE BRANCH BLOCK [None]
  - DIABETIC KETOACIDOSIS [None]
  - ERECTILE DYSFUNCTION [None]
  - ESSENTIAL HYPERTENSION [None]
  - GLYCOSURIA [None]
  - GYNAECOMASTIA [None]
  - HYPOGLYCAEMIA [None]
  - OEDEMA PERIPHERAL [None]
  - PANCREATITIS [None]
  - POLYDIPSIA [None]
  - POLYURIA [None]
  - SOMNOLENCE [None]
